FAERS Safety Report 10574399 (Version 1)
Quarter: 2014Q4

REPORT INFORMATION
  Report Type: Spontaneous
  Country: BR (occurrence: BR)
  Receive Date: 20141110
  Receipt Date: 20141110
  Transmission Date: 20150529
  Serious: Yes (Hospitalization)
  Sender: FDA-Public Use
  Company Number: BR-ABBVIE-14K-020-1304516-00

PATIENT
  Age: 43 Year
  Sex: Female
  Weight: 73 kg

DRUGS (2)
  1. HUMIRA [Suspect]
     Active Substance: ADALIMUMAB
     Indication: ANKYLOSING SPONDYLITIS
     Route: 058
     Dates: start: 20140917
  2. MESALAZINE [Concomitant]
     Active Substance: MESALAMINE
     Indication: COLITIS ULCERATIVE
     Dosage: 1000MG MORNING, 1000MG AFTERNOON AND 1000MG NIGHT
     Route: 048
     Dates: start: 201202

REACTIONS (10)
  - Skin exfoliation [Not Recovered/Not Resolved]
  - Injection site mass [Recovering/Resolving]
  - Arthropathy [Recovered/Resolved]
  - Dermatitis [Recovered/Resolved]
  - Injection site erythema [Recovering/Resolving]
  - Headache [Recovered/Resolved]
  - Injection site pruritus [Recovering/Resolving]
  - Localised infection [Recovered/Resolved]
  - Injection site mass [Recovering/Resolving]
  - Back pain [Recovering/Resolving]

NARRATIVE: CASE EVENT DATE: 2014
